FAERS Safety Report 5364916-4 (Version None)
Quarter: 2007Q2

REPORT INFORMATION
  Report Type: 
  Country: None (occurrence: None)
  Receive Date: 20070621
  Receipt Date: 20070609
  Transmission Date: 20071010
  Serious: Yes (Other)
  Sender: FDA-Public Use
  Company Number: US-JNJFOC-20070603691

PATIENT
  Sex: Female
  Weight: 63.5 kg

DRUGS (5)
  1. EXTRA STRENGTH TYLENOL [Suspect]
  2. EXTRA STRENGTH TYLENOL [Suspect]
     Indication: HEADACHE
  3. MOTRIN [Concomitant]
     Dosage: AS NECESSARY
  4. BENADRYL [Concomitant]
     Indication: MULTIPLE ALLERGIES
     Dosage: AT NIGHT
  5. MILK OF MAGNESIA [Concomitant]
     Dosage: AS NECESSARY

REACTIONS (6)
  - CHEST CRUSHING [None]
  - DIZZINESS [None]
  - DRY MOUTH [None]
  - DYSPNOEA [None]
  - PALPITATIONS [None]
  - THROAT TIGHTNESS [None]
